FAERS Safety Report 23517938 (Version 2)
Quarter: 2024Q1

REPORT INFORMATION
  Report Type: Spontaneous
  Country: CZ (occurrence: CZ)
  Receive Date: 20240213
  Receipt Date: 20240311
  Transmission Date: 20240410
  Serious: Yes (Other)
  Sender: FDA-Public Use
  Company Number: CZ-Provepharm SAS-2023000127

PATIENT
  Age: 8 Year
  Sex: Female

DRUGS (4)
  1. ADRENALIN [Suspect]
     Active Substance: EPINEPHRINE
     Indication: Circulatory collapse
     Dosage: UNK
     Route: 065
  2. METHYLENE BLUE [Suspect]
     Active Substance: METHYLENE BLUE
     Indication: Circulatory collapse
     Dosage: METHYLENOV? MODR
     Route: 065
  3. NOREPINEPHRINE\NOREPINEPHRINE BITARTRATE [Suspect]
     Active Substance: NOREPINEPHRINE\NOREPINEPHRINE BITARTRATE
     Indication: Circulatory collapse
     Dosage: UNK
     Route: 065
  4. FILGRASTIM [Suspect]
     Active Substance: FILGRASTIM
     Indication: Neutropenic colitis
     Dosage: UNK
     Route: 065

REACTIONS (3)
  - Abdominal compartment syndrome [Recovered/Resolved]
  - Livedo reticularis [Recovered/Resolved with Sequelae]
  - Product use in unapproved indication [Unknown]
